FAERS Safety Report 6506410-0 (Version None)
Quarter: 2009Q4

REPORT INFORMATION
  Report Type: 
  Country: None (occurrence: None)
  Receive Date: 20091219
  Receipt Date: 20091208
  Transmission Date: 20100525
  Serious: Yes (Hospitalization)
  Sender: FDA-Public Use
  Company Number: US-ORACLE-2009S1000519

PATIENT
  Sex: Male

DRUGS (8)
  1. CUBICIN [Suspect]
     Indication: ABSCESS
     Route: 042
  2. CUBICIN [Suspect]
     Indication: CELLULITIS
     Route: 042
  3. CUBICIN [Suspect]
     Indication: STAPHYLOCOCCAL INFECTION
     Route: 042
  4. CUBICIN [Suspect]
     Indication: ARTHRITIS BACTERIAL
     Route: 042
  5. CUBICIN [Suspect]
     Route: 042
  6. CUBICIN [Suspect]
     Indication: OSTEOMYELITIS
     Route: 042
  7. CUBICIN [Suspect]
     Indication: OFF LABEL USE
     Route: 042
  8. VANCOMYCIN [Concomitant]

REACTIONS (7)
  - ABSCESS [None]
  - ARTHRITIS BACTERIAL [None]
  - DRUG INEFFECTIVE FOR UNAPPROVED INDICATION [None]
  - OSTEOMYELITIS [None]
  - PSOAS ABSCESS [None]
  - STAPHYLOCOCCAL ABSCESS [None]
  - STAPHYLOCOCCAL BACTERAEMIA [None]
